FAERS Safety Report 5586107-4 (Version None)
Quarter: 2008Q1

REPORT INFORMATION
  Report Type: 
  Country: None (occurrence: None)
  Receive Date: 20080109
  Receipt Date: 20080103
  Transmission Date: 20080703
  Serious: Yes (Death)
  Sender: FDA-Public Use
  Company Number: AU-MERCK-0608AUS00023

PATIENT
  Age: 61 Year
  Sex: Male

DRUGS (3)
  1. FOSAMAX [Suspect]
     Indication: OSTEOPOROSIS
     Route: 048
     Dates: start: 20060401
  2. ATORVASTATIN CALCIUM [Concomitant]
     Indication: BLOOD CHOLESTEROL ABNORMAL
     Route: 048
     Dates: start: 19980101
  3. VENLAFAXINE HYDROCHLORIDE [Concomitant]
     Indication: STRESS
     Route: 048

REACTIONS (4)
  - FEELING ABNORMAL [None]
  - MIGRAINE [None]
  - ROAD TRAFFIC ACCIDENT [None]
  - SWEATING FEVER [None]
